FAERS Safety Report 5964341-9 (Version None)
Quarter: 2008Q4

REPORT INFORMATION
  Report Type: 
  Country: None (occurrence: None)
  Receive Date: 20081124
  Receipt Date: 20081114
  Transmission Date: 20090506
  Serious: Yes (Disabling, Other)
  Sender: FDA-Public Use
  Company Number: JP-PFIZER INC-2008088385

PATIENT
  Sex: Female
  Weight: 71 kg

DRUGS (8)
  1. EPLERENONE [Suspect]
     Indication: HYPERTENSION
     Route: 048
     Dates: start: 20080615, end: 20081015
  2. ADALAT CC [Concomitant]
     Indication: HYPERTENSION
     Route: 048
  3. BLADDERON [Concomitant]
     Indication: POLLAKIURIA
     Route: 048
  4. LIVALO [Concomitant]
     Indication: HYPERCHOLESTEROLAEMIA
     Route: 048
  5. SENNOSIDES [Concomitant]
     Indication: CONSTIPATION
     Route: 048
  6. PELEX [Concomitant]
     Indication: NASOPHARYNGITIS
     Route: 048
     Dates: start: 20080820, end: 20080925
  7. GARENOXACIN MESYLATE [Concomitant]
     Indication: PHARYNGITIS
     Route: 048
     Dates: start: 20080820, end: 20080825
  8. AZUNOL [Concomitant]
     Indication: PHARYNGITIS
     Dates: start: 20080820, end: 20080825

REACTIONS (2)
  - ANOREXIA [None]
  - HEPATIC FUNCTION ABNORMAL [None]
